FAERS Safety Report 14110851 (Version 2)
Quarter: 2020Q2

REPORT INFORMATION
  Report Type: Spontaneous
  Country: US (occurrence: US)
  Receive Date: 20171020
  Receipt Date: 20200514
  Transmission Date: 20200713
  Serious: No
  Sender: FDA-Public Use
  Company Number: US-ELI_LILLY_AND_COMPANY-US201710000479

PATIENT
  Age: 13 Year
  Sex: Male

DRUGS (2)
  1. HUMATROPE [Suspect]
     Active Substance: SOMATROPIN
     Indication: SHORT STATURE
     Dosage: 1.5 MG, UNKNOWN
     Route: 058
     Dates: start: 20171001
  2. HUMATROPE [Suspect]
     Active Substance: SOMATROPIN
     Indication: GROWTH HORMONE DEFICIENCY
     Dosage: 1.7 UNK
     Route: 058
     Dates: start: 20170929

REACTIONS (4)
  - Incorrect dose administered [Unknown]
  - Injection site bruising [Not Recovered/Not Resolved]
  - Drug administered in wrong device [Unknown]
  - Application site papules [Recovered/Resolved]

NARRATIVE: CASE EVENT DATE: 20171001
